FAERS Safety Report 14047224 (Version 1)
Quarter: 2017Q4

REPORT INFORMATION
  Report Type: Spontaneous
  Country: US (occurrence: US)
  Receive Date: 20171005
  Receipt Date: 20171005
  Transmission Date: 20180321
  Serious: No
  Sender: FDA-Public Use
  Company Number: US-INDIVIOR LIMITED-INDV-099993-2017

PATIENT
  Sex: Male

DRUGS (2)
  1. SUBOXONE [Suspect]
     Active Substance: BUPRENORPHINE HYDROCHLORIDE\NALOXONE HYDROCHLORIDE
     Indication: PAIN
     Dosage: 2MG, UPTO TWICE DAILY BY CUTTING
     Route: 065
  2. SUBOXONE [Suspect]
     Active Substance: BUPRENORPHINE HYDROCHLORIDE\NALOXONE HYDROCHLORIDE
     Indication: DRUG USE DISORDER
     Dosage: UNK, ON AND OFF FOR 3 YEARS
     Route: 065

REACTIONS (6)
  - Intentional product misuse [Unknown]
  - Poor quality sleep [Unknown]
  - Eating disorder [Unknown]
  - Product preparation error [Unknown]
  - Abdominal discomfort [Unknown]
  - Vomiting [Unknown]
